FAERS Safety Report 7499802-7 (Version None)
Quarter: 2011Q2

REPORT INFORMATION
  Report Type: 
  Country: None (occurrence: None)
  Receive Date: 20110524
  Receipt Date: 20101122
  Transmission Date: 20111010
  Serious: No
  Sender: FDA-Public Use
  Company Number: US-B.I. PHARMACEUTICALS,INC./RIDGEFIELD-2010-BP-13178BP

PATIENT
  Age: 84 Year
  Sex: Male

DRUGS (7)
  1. OMEPRAZOLE [Concomitant]
     Indication: PROPHYLAXIS
  2. NAMENDA [Concomitant]
     Indication: DEMENTIA
  3. LISINOPRIL [Concomitant]
     Dates: end: 20100101
  4. PRADAXA [Suspect]
     Dosage: 300 MG
     Route: 048
     Dates: start: 20101104, end: 20101111
  5. PRADAXA [Suspect]
     Indication: ATRIAL FIBRILLATION
     Dosage: 300 MG
     Route: 048
     Dates: start: 20101117
  6. ARICEPT [Concomitant]
     Indication: DEMENTIA
  7. LASIX [Concomitant]

REACTIONS (3)
  - BLOOD PRESSURE ABNORMAL [None]
  - LIP SWELLING [None]
  - ECCHYMOSIS [None]
